FAERS Safety Report 5872937-8 (Version None)
Quarter: 2008Q3

REPORT INFORMATION
  Report Type: 
  Country: None (occurrence: None)
  Receive Date: 20080905
  Receipt Date: 20080901
  Transmission Date: 20090109
  Serious: Yes (Other)
  Sender: FDA-Public Use
  Company Number: JP-PFIZER INC-2008071108

PATIENT
  Age: 56 Year
  Sex: Female

DRUGS (2)
  1. PREDNISOLONE [Suspect]
     Dosage: DAILY DOSE:7.5MG
     Route: 048
  2. PREDNISOLONE [Suspect]
     Dosage: DAILY DOSE:50MG-TEXT:1 MG/KG
     Route: 048

REACTIONS (3)
  - CYTOMEGALOVIRUS INFECTION [None]
  - GASTRODUODENAL ULCER [None]
  - PROTEINURIA [None]
